FAERS Safety Report 21534892 (Version 1)
Quarter: 2022Q4

REPORT INFORMATION
  Report Type: Spontaneous
  Country: US (occurrence: US)
  Receive Date: 20221101
  Receipt Date: 20221101
  Transmission Date: 20230113
  Serious: No
  Sender: FDA-Public Use
  Company Number: US-MIGRATION_PFIZER-2022BHV001565

PATIENT
  Age: 63 Year
  Sex: Female
  Weight: 88.530 kg

DRUGS (1)
  1. NURTEC ODT [Suspect]
     Active Substance: RIMEGEPANT SULFATE
     Indication: Migraine
     Dosage: PATIENT TOOK ABOUT 15-18 TABLETS IN ONE MONTH. SHE WAS TAKING 1 TABLET BY MOUTH AS NEEDED FOR MIGRAI
     Route: 060
     Dates: start: 20220503, end: 202205

REACTIONS (2)
  - Vaginal haemorrhage [Not Recovered/Not Resolved]
  - Abdominal discomfort [Not Recovered/Not Resolved]

NARRATIVE: CASE EVENT DATE: 20220604
